FAERS Safety Report 5518776-9 (Version None)
Quarter: 2007Q4

REPORT INFORMATION
  Report Type: 
  Country: None (occurrence: None)
  Receive Date: 20071115
  Receipt Date: 20071101
  Transmission Date: 20080405
  Serious: Yes (Other)
  Sender: FDA-Public Use
  Company Number: GB-RANBAXY-2007RR-11229

PATIENT

DRUGS (2)
  1. ACETAMINOPHEN [Suspect]
     Indication: SUICIDE ATTEMPT
     Dosage: 45 G, UNK
  2. PHENYTOIN [Suspect]

REACTIONS (4)
  - DRUG INTERACTION POTENTIATION [None]
  - HEPATIC ENCEPHALOPATHY [None]
  - INTENTIONAL OVERDOSE [None]
  - VOMITING [None]
